FAERS Safety Report 16528825 (Version 2)
Quarter: 2019Q3

REPORT INFORMATION
  Report Type: Spontaneous
  Country: US (occurrence: US)
  Receive Date: 20190703
  Receipt Date: 20190710
  Transmission Date: 20191004
  Serious: Yes (Other)
  Sender: FDA-Public Use
  Company Number: US-BAUSCH-BL-2019-018913

PATIENT
  Age: 81 Year
  Sex: Female

DRUGS (2)
  1. OCEAN SALINE NASAL SPRAY [Suspect]
     Active Substance: SODIUM CHLORIDE
     Indication: NASAL DRYNESS
     Dosage: STARTED IN OCT/2018 OR NOV/2018 (1.5 BOTTLE)
     Route: 045
     Dates: start: 2018
  2. OCEAN SALINE NASAL SPRAY [Suspect]
     Active Substance: SODIUM CHLORIDE
     Dosage: NEAR THE END OF MAY 2019 (AS NEEDED, SOMETIMES 2 TIMES A DAY, SOMETIMES 4 TIMES A WEEK)
     Route: 045
     Dates: start: 201905, end: 20190627

REACTIONS (6)
  - Pneumonia [Recovered/Resolved]
  - Lung disorder [Not Recovered/Not Resolved]
  - Cough [Not Recovered/Not Resolved]
  - Expired product administered [Unknown]
  - Recalled product administered [Unknown]
  - Malaise [Not Recovered/Not Resolved]

NARRATIVE: CASE EVENT DATE: 201811
